FAERS Safety Report 5675251-9 (Version None)
Quarter: 2008Q1

REPORT INFORMATION
  Report Type: 
  Country: None (occurrence: None)
  Receive Date: 20080320
  Receipt Date: 20080310
  Transmission Date: 20080703
  Serious: Yes (Life-Threatening, Hospitalization)
  Sender: FDA-Public Use
  Company Number: ES-ELI_LILLY_AND_COMPANY-ES200803002083

PATIENT
  Age: 72 Year
  Sex: Male

DRUGS (4)
  1. PROZAC [Suspect]
     Indication: DEPRESSION
     Dosage: 20 MG, 3/D
     Route: 048
  2. SOMAZINA [Concomitant]
     Indication: DEPRESSION
     Dosage: 1 ML, UNKNOWN
     Route: 048
  3. ADIRO [Concomitant]
     Dosage: 100 MG, UNKNOWN
     Dates: end: 20071121
  4. ENALAPRIL MALEATE [Concomitant]
     Indication: HYPERTENSION
     Dosage: 20 MG, UNKNOWN
     Route: 048

REACTIONS (1)
  - CEREBRAL HAEMATOMA [None]
